FAERS Safety Report 19449547 (Version 3)
Quarter: 2023Q4

REPORT INFORMATION
  Report Type: Report from Study
  Country: NL (occurrence: NL)
  Receive Date: 20210622
  Receipt Date: 20231019
  Transmission Date: 20240110
  Serious: Yes (Hospitalization)
  Sender: FDA-Public Use
  Company Number: NL-TAKEDA-2021TUS029267

PATIENT
  Sex: Male
  Weight: 78 kg

DRUGS (6)
  1. BRENTUXIMAB VEDOTIN [Suspect]
     Active Substance: BRENTUXIMAB VEDOTIN
     Indication: Hodgkin^s disease
     Dosage: 97 MILLIGRAM, Q2WEEKS
     Route: 042
     Dates: start: 20210212, end: 20210506
  2. MODERNA COVID-19 VACCINE [Concomitant]
     Active Substance: ELASOMERAN
     Indication: COVID-19
     Dosage: UNK
     Route: 030
     Dates: start: 20210430
  3. DOXORUBICIN HYDROCHLORIDE [Concomitant]
     Active Substance: DOXORUBICIN HYDROCHLORIDE
     Indication: Hodgkin^s disease
     Dosage: 52 MILLIGRAM, Q2WEEKS
     Route: 042
     Dates: start: 20210212, end: 20210506
  4. DACARBAZINE [Concomitant]
     Active Substance: DACARBAZINE
     Indication: Hodgkin^s disease
     Dosage: 776 MILLIGRAM, Q2WEEKS
     Route: 042
     Dates: start: 20210212, end: 20210506
  5. DEXAMETHASONE [Concomitant]
     Active Substance: DEXAMETHASONE
     Indication: Hodgkin^s disease
     Dosage: 8 MILLIGRAM
     Route: 048
     Dates: start: 20210213, end: 20210506
  6. VINBLASTINE [Concomitant]
     Active Substance: VINBLASTINE
     Indication: Hodgkin^s disease
     Dosage: 12 MILLIGRAM, Q2WEEKS
     Route: 042
     Dates: start: 20210212, end: 20210506

REACTIONS (2)
  - Pyrexia [Recovered/Resolved]
  - Pneumocystis jirovecii pneumonia [Recovered/Resolved]

NARRATIVE: CASE EVENT DATE: 20210410
